FAERS Safety Report 10231321 (Version 1)
Quarter: 2014Q2

REPORT INFORMATION
  Report Type: Spontaneous
  Country: IR (occurrence: IR)
  Receive Date: 20140611
  Receipt Date: 20140611
  Transmission Date: 20141212
  Serious: Yes (Hospitalization)
  Sender: FDA-Public Use
  Company Number: IR-VIIV HEALTHCARE LIMITED-B1002660A

PATIENT
  Age: 34 Year
  Sex: Female

DRUGS (3)
  1. LAMIVUDINE-HIV [Suspect]
     Indication: HIV INFECTION
     Route: 065
  2. ZIDOVUDINE [Suspect]
     Indication: HIV INFECTION
     Route: 065
  3. EFAVIRENZ [Suspect]
     Indication: HIV INFECTION
     Route: 065

REACTIONS (8)
  - Cytomegalovirus chorioretinitis [Recovered/Resolved]
  - Vision blurred [Unknown]
  - Vitritis [Unknown]
  - Retinal perivascular sheathing [Unknown]
  - Necrotising retinitis [Unknown]
  - Retinal haemorrhage [Unknown]
  - Anaemia [Unknown]
  - Leukopenia [Unknown]
